FAERS Safety Report 7052512-2 (Version None)
Quarter: 2010Q4

REPORT INFORMATION
  Report Type: 
  Country: None (occurrence: None)
  Receive Date: 20101019
  Receipt Date: 20101007
  Transmission Date: 20110411
  Serious: Yes (Other)
  Sender: FDA-Public Use
  Company Number: GB-PFIZER INC-2010127924

PATIENT
  Age: 63 Year
  Sex: Female

DRUGS (4)
  1. EPANUTIN [Suspect]
     Dosage: 75MG IN MORNING, 150MG IN EVENING
  2. PRIMIDONE [Concomitant]
  3. VITAMIN D [Concomitant]
     Indication: ARTHRITIS
  4. CALCIUM [Concomitant]
     Indication: ARTHRITIS

REACTIONS (12)
  - AGGRESSION [None]
  - ARTHRALGIA [None]
  - BLOOD CALCIUM DECREASED [None]
  - DEPRESSION [None]
  - GINGIVAL BLEEDING [None]
  - HAEMORRHAGE [None]
  - MALAISE [None]
  - NAUSEA [None]
  - NEUROSURGERY [None]
  - PAIN [None]
  - SUICIDAL IDEATION [None]
  - VOMITING [None]
